FAERS Safety Report 9696763 (Version 2)
Quarter: 2013Q4

REPORT INFORMATION
  Report Type: Spontaneous
  Country: US (occurrence: US)
  Receive Date: 20131119
  Receipt Date: 20131119
  Transmission Date: 20140711
  Serious: No
  Sender: FDA-Public Use
  Company Number: US-GILEAD-2007-0014516

PATIENT
  Age: 49 Year
  Sex: Female
  Weight: 58.97 kg

DRUGS (8)
  1. LETAIRIS [Suspect]
     Indication: PULMONARY ARTERIAL HYPERTENSION
     Route: 048
     Dates: start: 20071101
  2. COUMADIN [Concomitant]
     Indication: ANTICOAGULANT THERAPY
     Route: 048
  3. HYZAAR [Concomitant]
     Indication: ESSENTIAL HYPERTENSION
     Route: 048
  4. VALIUM [Concomitant]
     Indication: DEPRESSION
     Route: 048
  5. CITALOPRAM HYDROBROMIDE [Concomitant]
     Indication: DEPRESSION
     Route: 048
  6. OXYCODONE - ACETAMINOPHEN [Concomitant]
     Indication: PAIN
     Dosage: 5/500 MG
     Route: 048
  7. ATROPINE [Concomitant]
     Indication: MYOPIA
     Route: 047
  8. SOTALOL HCL [Concomitant]
     Indication: ARRHYTHMIA
     Route: 048

REACTIONS (1)
  - Rash [Not Recovered/Not Resolved]
